FAERS Safety Report 14633128 (Version 9)
Quarter: 2019Q1

REPORT INFORMATION
  Report Type: Report from Study
  Country: US (occurrence: US)
  Receive Date: 20180313
  Receipt Date: 20190226
  Transmission Date: 20190417
  Serious: Yes (Death, Hospitalization)
  Sender: FDA-Public Use
  Company Number: US-ACTELION-A-US2017-152995

PATIENT
  Age: 57 Year
  Sex: Female
  Weight: 81.63 kg

DRUGS (3)
  1. REMODULIN [Concomitant]
     Active Substance: TREPROSTINIL
  2. WARFARIN [Concomitant]
     Active Substance: WARFARIN
  3. TRACLEER [Suspect]
     Active Substance: BOSENTAN
     Indication: PULMONARY ARTERIAL HYPERTENSION
     Dosage: 125 MG, BID
     Route: 048

REACTIONS (11)
  - Pneumonia [Unknown]
  - Dyspnoea [Unknown]
  - Death [Fatal]
  - Abdominal pain upper [Unknown]
  - Unresponsive to stimuli [Unknown]
  - Pyrexia [Unknown]
  - Contusion [Unknown]
  - Back pain [Unknown]
  - Vomiting [Unknown]
  - Oral candidiasis [Unknown]
  - Nasopharyngitis [Unknown]

NARRATIVE: CASE EVENT DATE: 20190130
